FAERS Safety Report 23214597 (Version 1)
Quarter: 2023Q4

REPORT INFORMATION
  Report Type: Spontaneous
  Country: US (occurrence: US)
  Receive Date: 20231121
  Receipt Date: 20231121
  Transmission Date: 20240109
  Serious: No
  Sender: FDA-Public Use
  Company Number: US-009507513-2311USA007090

PATIENT
  Sex: Male

DRUGS (1)
  1. KEYTRUDA [Suspect]
     Active Substance: PEMBROLIZUMAB
     Indication: Metastatic malignant melanoma
     Dosage: 200 MILLIGRAM, EVERY 21 DAYS
     Route: 042

REACTIONS (4)
  - Fatigue [Unknown]
  - Pain [Unknown]
  - Arthritis [Unknown]
  - Swelling [Unknown]
